FAERS Safety Report 6730792-8 (Version None)
Quarter: 2010Q2

REPORT INFORMATION
  Report Type: 
  Country: None (occurrence: None)
  Receive Date: 20100518
  Receipt Date: 20100511
  Transmission Date: 20101027
  Serious: Yes (Other)
  Sender: FDA-Public Use
  Company Number: CA-PFIZER INC-2010059210

PATIENT
  Age: 68 Year
  Sex: Male

DRUGS (7)
  1. LIPITOR [Suspect]
     Dosage: 10 MG, 1X/DAY
  2. ASPIRIN [Concomitant]
     Dosage: UNK
  3. DOCUSATE [Concomitant]
     Dosage: UNK
  4. SENOKOT [Concomitant]
     Dosage: UNK
  5. PANTOLOC ^BYK MADAUS^ [Concomitant]
     Dosage: UNK
  6. MICARDIS [Concomitant]
     Dosage: 40 MG, 1X/DAY
  7. SYNTHROID [Concomitant]
     Dosage: 0.5 MG, UNK

REACTIONS (7)
  - ACTIVITIES OF DAILY LIVING IMPAIRED [None]
  - CONDITION AGGRAVATED [None]
  - DIARRHOEA [None]
  - FATIGUE [None]
  - HEADACHE [None]
  - INFLUENZA [None]
  - MEMORY IMPAIRMENT [None]
